FAERS Safety Report 17234010 (Version 1)
Quarter: 2020Q1

REPORT INFORMATION
  Report Type: Spontaneous
  Country: US (occurrence: US)
  Receive Date: 20200106
  Receipt Date: 20200106
  Transmission Date: 20200409
  Serious: No
  Sender: FDA-Public Use
  Company Number: US-UCBSA-2014004764

PATIENT
  Sex: Female

DRUGS (7)
  1. CIMZIA [Suspect]
     Active Substance: CERTOLIZUMAB PEGOL
  2. PROTONIX [Concomitant]
     Active Substance: PANTOPRAZOLE SODIUM
     Indication: GASTROOESOPHAGEAL REFLUX DISEASE
  3. 6-MP [Concomitant]
     Active Substance: MERCAPTOPURINE
     Dosage: 100MG
  4. HUMIRA [Concomitant]
     Active Substance: ADALIMUMAB
  5. 6-MP [Concomitant]
     Active Substance: MERCAPTOPURINE
     Dosage: 125 MG
  6. PROTONIX [Concomitant]
     Active Substance: PANTOPRAZOLE SODIUM
     Indication: DYSPEPSIA
  7. REMICADE [Concomitant]
     Active Substance: INFLIXIMAB

REACTIONS (1)
  - Product storage error [Unknown]
